FAERS Safety Report 5600332-5 (Version None)
Quarter: 2008Q1

REPORT INFORMATION
  Report Type: 
  Country: None (occurrence: None)
  Receive Date: 20080123
  Receipt Date: 20080116
  Transmission Date: 20080703
  Serious: Yes (Hospitalization)
  Sender: FDA-Public Use
  Company Number: US-AVENTIS-200718366US

PATIENT
  Age: 88 Year
  Sex: Male

DRUGS (11)
  1. TAXOTERE [Suspect]
     Indication: LUNG CARCINOMA CELL TYPE UNSPECIFIED STAGE II
     Dosage: DOSE: 45 MG W/RADIATION FOR 5 WKS
     Dates: start: 20070801, end: 20070901
  2. TAXOTERE [Suspect]
     Dates: start: 20070904, end: 20070904
  3. TAXOTERE [Suspect]
     Dates: start: 20070912, end: 20070912
  4. TAXOTERE [Suspect]
     Dates: start: 20070913, end: 20070913
  5. TAXOTERE [Suspect]
     Dates: start: 20070918, end: 20070918
  6. PROSCAR [Concomitant]
     Dosage: DOSE: UNK
  7. OCUVITE                            /01053801/ [Concomitant]
     Dosage: DOSE QUANTITY: 1
  8. ASPIRIN [Concomitant]
  9. FLOMAX [Concomitant]
     Dosage: DOSE: UNK
  10. NAMENDA [Concomitant]
     Dosage: DOSE: UNK
  11. EXELON                             /01383202/ [Concomitant]

REACTIONS (7)
  - BALANCE DISORDER [None]
  - DIZZINESS [None]
  - FALL [None]
  - GAIT DISTURBANCE [None]
  - MEMORY IMPAIRMENT [None]
  - ORTHOSTATIC HYPOTENSION [None]
  - SUBDURAL HAEMATOMA [None]
